FAERS Safety Report 12214479 (Version 5)
Quarter: 2016Q3

REPORT INFORMATION
  Report Type: Report from Study
  Country: CA (occurrence: CA)
  Receive Date: 20160328
  Receipt Date: 20160905
  Transmission Date: 20161109
  Serious: Yes (Other)
  Sender: FDA-Public Use
  Company Number: CA-JNJFOC-20160317549

PATIENT
  Age: 57 Year
  Sex: Female
  Weight: 104 kg

DRUGS (1)
  1. REMICADE [Suspect]
     Active Substance: INFLIXIMAB
     Indication: COLITIS ULCERATIVE
     Route: 042
     Dates: start: 20160204

REACTIONS (7)
  - Diarrhoea [Unknown]
  - Benign breast neoplasm [Recovering/Resolving]
  - Depression [Recovered/Resolved]
  - Anxiety disorder [Recovered/Resolved]
  - Drug effect decreased [Unknown]
  - Insomnia [Recovered/Resolved]
  - Burnout syndrome [Recovered/Resolved]

NARRATIVE: CASE EVENT DATE: 20160310
